FAERS Safety Report 20839257 (Version 1)
Quarter: 2022Q2

REPORT INFORMATION
  Report Type: Spontaneous
  Country: TN (occurrence: TN)
  Receive Date: 20220517
  Receipt Date: 20220517
  Transmission Date: 20220720
  Serious: Yes (Other)
  Sender: FDA-Public Use
  Company Number: TN-MEITHEAL-2022MPLIT00066

PATIENT
  Age: 65 Year
  Sex: Male

DRUGS (8)
  1. CISATRACURIUM BESYLATE [Suspect]
     Active Substance: CISATRACURIUM BESYLATE
     Indication: Endotracheal intubation
     Route: 042
  2. NEOSTIGMINE [Suspect]
     Active Substance: NEOSTIGMINE
     Indication: General anaesthesia
     Route: 065
  3. ATROPINE [Suspect]
     Active Substance: ATROPINE
     Indication: Endotracheal intubation
     Route: 065
  4. FENTANYL [Suspect]
     Active Substance: FENTANYL
     Indication: General anaesthesia
     Dosage: 3 UG/KG
     Route: 042
  5. ISOFLURANE [Suspect]
     Active Substance: ISOFLURANE
     Indication: General anaesthesia
     Dosage: 1 TO1.5 MIN ALVEOLAR CONCENTRATION
     Route: 065
  6. PROPOFOL [Suspect]
     Active Substance: PROPOFOL
     Indication: General anaesthesia
     Route: 042
  7. ACETAMINOPHEN [Concomitant]
     Active Substance: ACETAMINOPHEN
     Indication: Procedural pain
     Route: 042
  8. NEFOPAM [Concomitant]
     Active Substance: NEFOPAM
     Indication: Procedural pain
     Route: 042

REACTIONS (1)
  - Angle closure glaucoma [Recovered/Resolved]
